FAERS Safety Report 5528196-9 (Version None)
Quarter: 2007Q4

REPORT INFORMATION
  Report Type: 
  Country: None (occurrence: None)
  Receive Date: 20071128
  Receipt Date: 20071119
  Transmission Date: 20080405
  Serious: Yes (Other)
  Sender: FDA-Public Use
  Company Number: US-PFIZER INC-2006143507

PATIENT
  Sex: Female

DRUGS (4)
  1. BEXTRA [Suspect]
     Indication: BACK PAIN
  2. HYDROCODONE BITARTRATE [Concomitant]
  3. TIZANIDINE HCL [Concomitant]
  4. ULTRACET [Concomitant]

REACTIONS (1)
  - STEVENS-JOHNSON SYNDROME [None]
